FAERS Safety Report 21686854 (Version 1)
Quarter: 2022Q4

REPORT INFORMATION
  Report Type: Report from Study
  Country: US (occurrence: US)
  Receive Date: 20221206
  Receipt Date: 20221206
  Transmission Date: 20230113
  Serious: No
  Sender: FDA-Public Use
  Company Number: US-ABBVIE-4188713

PATIENT
  Sex: Female

DRUGS (1)
  1. HUMIRA [Suspect]
     Active Substance: ADALIMUMAB
     Indication: Psoriasis
     Dosage: 40MG CITRATE FREE
     Route: 058

REACTIONS (6)
  - Injection site erythema [Recovering/Resolving]
  - Pharyngitis streptococcal [Recovered/Resolved]
  - Influenza [Recovered/Resolved]
  - Injection site pruritus [Recovering/Resolving]
  - Injection site pain [Recovering/Resolving]
  - Injection site vesicles [Recovering/Resolving]
